FAERS Safety Report 9438493 (Version 1)
Quarter: 2013Q3

REPORT INFORMATION
  Report Type: Spontaneous
  Country: US (occurrence: None)
  Receive Date: 20130802
  Receipt Date: 20130802
  Transmission Date: 20140515
  Serious: Yes (Other)
  Sender: FDA-Public Use
  Company Number: None

PATIENT
  Sex: Male

DRUGS (1)
  1. EXJADE 250MG NOVARTIS [Suspect]
     Indication: IRON OVERLOAD
     Dosage: 1250MG QD PO
     Route: 048
     Dates: start: 20120614, end: 20130312

REACTIONS (1)
  - Haemoglobin increased [None]
